FAERS Safety Report 25504510 (Version 1)
Quarter: 2025Q3

REPORT INFORMATION
  Report Type: Spontaneous
  Country: TW (occurrence: TW)
  Receive Date: 20250702
  Receipt Date: 20250702
  Transmission Date: 20251020
  Serious: Yes (Hospitalization, Other)
  Sender: PFIZER
  Company Number: TW-PFIZER INC-PV202500078449

PATIENT
  Age: 78 Year
  Sex: Male
  Weight: 74.7 kg

DRUGS (13)
  1. UNASYN [Suspect]
     Active Substance: AMPICILLIN SODIUM\SULBACTAM SODIUM
     Indication: Infection
     Dosage: 4000 MG, 2X/DAY
     Route: 042
     Dates: start: 20250509, end: 20250522
  2. UNASYN [Suspect]
     Active Substance: AMPICILLIN SODIUM\SULBACTAM SODIUM
     Dosage: 2000 MG, 4X/DAY
     Route: 042
     Dates: start: 20250522, end: 20250523
  3. DIFLUCAN [Suspect]
     Active Substance: FLUCONAZOLE
     Indication: Infection
     Dosage: 4 DF, 1X/DAY
     Route: 048
     Dates: start: 20250523, end: 20250525
  4. DIFLUCAN [Suspect]
     Active Substance: FLUCONAZOLE
     Dosage: 2 DF, 1X/DAY
     Route: 048
     Dates: start: 20250525, end: 20250527
  5. TYGACIL [Suspect]
     Active Substance: TIGECYCLINE
     Indication: Infection
     Route: 041
     Dates: start: 20250507, end: 20250507
  6. TYGACIL [Suspect]
     Active Substance: TIGECYCLINE
     Dosage: 100 MG, 2X/DAY
     Route: 041
     Dates: start: 20250507, end: 20250515
  7. TYGACIL [Suspect]
     Active Substance: TIGECYCLINE
     Dosage: 50 MG, 2X/DAY
     Route: 041
     Dates: start: 20250515, end: 20250521
  8. ACETAMINOPHEN [Suspect]
     Active Substance: ACETAMINOPHEN
     Indication: Pain management
     Dosage: 1 DF, 4X/DAY
     Route: 048
     Dates: start: 20250503, end: 20250528
  9. LEVOFLOXACIN [Suspect]
     Active Substance: LEVOFLOXACIN
     Indication: Infection
     Dosage: 750.0 MG, ALTERNATE DAY
     Route: 041
     Dates: start: 20250530, end: 20250605
  10. LEVOFLOXACIN [Suspect]
     Active Substance: LEVOFLOXACIN
     Dosage: 500 MG, ALTERNATE DAY
     Route: 041
     Dates: start: 20250605, end: 20250613
  11. CEFOPERAZONE SODIUM\SULBACTAM SODIUM [Suspect]
     Active Substance: CEFOPERAZONE SODIUM\SULBACTAM SODIUM
     Indication: Infection
     Dosage: 2000 MG, 3X/DAY
     Route: 042
     Dates: start: 20250523, end: 20250527
  12. CEFOPERAZONE SODIUM\SULBACTAM SODIUM [Suspect]
     Active Substance: CEFOPERAZONE SODIUM\SULBACTAM SODIUM
     Dosage: 2000 MG, 2X/DAY
     Route: 042
     Dates: start: 20250527, end: 20250530
  13. CRESTOR [Concomitant]
     Active Substance: ROSUVASTATIN CALCIUM
     Indication: Dyslipidaemia
     Dosage: 0.5 DF, 1X/DAY
     Route: 048
     Dates: start: 20250509, end: 20250526

REACTIONS (7)
  - Hepatic failure [Recovering/Resolving]
  - Liver function test increased [Recovering/Resolving]
  - Ascites [Unknown]
  - Ammonia increased [Unknown]
  - Jaundice [Unknown]
  - Coagulopathy [Unknown]
  - Somnolence [Unknown]

NARRATIVE: CASE EVENT DATE: 20250522
